FAERS Safety Report 5401958-4 (Version None)
Quarter: 2007Q3

REPORT INFORMATION
  Report Type: 
  Country: None (occurrence: None)
  Receive Date: 20070731
  Receipt Date: 20070726
  Transmission Date: 20080115
  Serious: Yes (Disabling)
  Sender: FDA-Public Use
  Company Number: US-MERCK-0706USA01204

PATIENT
  Age: 69 Year
  Sex: Male
  Weight: 127 kg

DRUGS (2)
  1. JANUVIA [Suspect]
     Route: 048
     Dates: start: 20070411
  2. JANUVIA [Suspect]
     Route: 048
     Dates: end: 20070522

REACTIONS (1)
  - DYSPNOEA [None]
